FAERS Safety Report 19855383 (Version 1)
Quarter: 2021Q3

REPORT INFORMATION
  Report Type: Spontaneous
  Country: US (occurrence: US)
  Receive Date: 20210917
  Receipt Date: 20210917
  Transmission Date: 20211014
  Serious: Yes (Hospitalization)
  Sender: FDA-Public Use
  Company Number: None

PATIENT

DRUGS (2)
  1. BYNFEZIA PEN [Concomitant]
     Active Substance: OCTREOTIDE ACETATE
  2. BYNFEZIA PEN [Suspect]
     Active Substance: OCTREOTIDE ACETATE

REACTIONS (1)
  - Hospitalisation [None]
